FAERS Safety Report 19347889 (Version 1)
Quarter: 2021Q2

REPORT INFORMATION
  Report Type: Spontaneous
  Country: US (occurrence: US)
  Receive Date: 20210531
  Receipt Date: 20210531
  Transmission Date: 20210717
  Serious: Yes (Other)
  Sender: FDA-Public Use
  Company Number: US-PURDUE-USA-2020-0159910

PATIENT
  Sex: Male

DRUGS (4)
  1. OXYCONTIN [Suspect]
     Active Substance: OXYCODONE HYDROCHLORIDE
     Indication: MUSCULOSKELETAL DISCOMFORT
     Dosage: UNK
     Route: 048
     Dates: start: 1996
  2. FIORICET [Suspect]
     Active Substance: ACETAMINOPHEN\BUTALBITAL\CAFFEINE
     Indication: MUSCULOSKELETAL DISCOMFORT
     Dosage: UNK
     Route: 065
     Dates: start: 1996
  3. LORTAB [Suspect]
     Active Substance: ACETAMINOPHEN\HYDROCODONE BITARTRATE
     Indication: MUSCULOSKELETAL DISCOMFORT
     Dosage: UNK
     Route: 065
     Dates: start: 1996
  4. SOMA [Suspect]
     Active Substance: CARISOPRODOL
     Indication: MUSCULOSKELETAL DISCOMFORT
     Dosage: UNK
     Route: 065
     Dates: start: 1996

REACTIONS (4)
  - Overdose [Unknown]
  - Depression [Unknown]
  - Drug dependence [Unknown]
  - Delusion [Unknown]
